FAERS Safety Report 7607735-8 (Version None)
Quarter: 2011Q3

REPORT INFORMATION
  Report Type: 
  Country: None (occurrence: None)
  Receive Date: 20110713
  Receipt Date: 20110605
  Transmission Date: 20111222
  Serious: Yes (Other)
  Sender: FDA-Public Use
  Company Number: PHHY2011US51887

PATIENT

DRUGS (3)
  1. AFINITOR [Suspect]
  2. SANDOSTATIN LAR [Suspect]
     Dosage: 30 MG, UNK
  3. SANDOSTATIN LAR [Suspect]
     Dosage: 20 MG, UNK

REACTIONS (1)
  - METASTATIC CARCINOID TUMOUR [None]
